FAERS Safety Report 10026492 (Version 1)
Quarter: 2014Q1

REPORT INFORMATION
  Report Type: Spontaneous
  Country: US (occurrence: US)
  Receive Date: 20140321
  Receipt Date: 20140321
  Transmission Date: 20141002
  Serious: Yes (Other)
  Sender: FDA-Public Use
  Company Number: US-BIOGENIDEC-2014BI025389

PATIENT
  Sex: Female
  Weight: 68 kg

DRUGS (3)
  1. AVONEX [Suspect]
     Indication: MULTIPLE SCLEROSIS
     Route: 030
     Dates: start: 20000501, end: 20140101
  2. ASPIR-81 [Concomitant]
     Route: 048
  3. NUVIGIL [Concomitant]
     Route: 048
     Dates: start: 20130820

REACTIONS (2)
  - Intraocular melanoma [Unknown]
  - Catheterisation cardiac [Unknown]
